FAERS Safety Report 23454808 (Version 1)
Quarter: 2024Q1

REPORT INFORMATION
  Report Type: Spontaneous
  Country: US (occurrence: US)
  Receive Date: 20240130
  Receipt Date: 20240130
  Transmission Date: 20240409
  Serious: Yes (Other)
  Sender: FDA-Public Use
  Company Number: US-STRIDES ARCOLAB LIMITED-2023SP007092

PATIENT
  Age: 8 Year
  Sex: Male

DRUGS (17)
  1. METHOTREXATE [Suspect]
     Active Substance: METHOTREXATE
     Indication: Psoriasis
     Dosage: UNK
     Route: 065
  2. METHOTREXATE [Suspect]
     Active Substance: METHOTREXATE
     Dosage: UNK (INJECTED)
     Route: 065
  3. ANTHRALIN [Suspect]
     Active Substance: ANTHRALIN
     Indication: Psoriasis
     Dosage: UNK
     Route: 065
  4. SORIATANE [Suspect]
     Active Substance: ACITRETIN
     Indication: Psoriasis
     Dosage: UNK
     Route: 065
  5. AMEVIVE [Suspect]
     Active Substance: ALEFACEPT
     Indication: Psoriasis
     Dosage: UNK
     Route: 065
  6. ENBREL [Suspect]
     Active Substance: ETANERCEPT
     Indication: Psoriasis
     Dosage: UNK
     Route: 065
  7. ENBREL [Suspect]
     Active Substance: ETANERCEPT
     Dosage: UNK (ETANERCEPT IN COMBINATION)
     Route: 065
  8. CELLCEPT [Suspect]
     Active Substance: MYCOPHENOLATE MOFETIL
     Indication: Psoriasis
     Dosage: UNK
     Route: 065
  9. HYDROXYUREA [Suspect]
     Active Substance: HYDROXYUREA
     Indication: Psoriasis
     Dosage: UNK
     Route: 065
  10. HUMIRA [Suspect]
     Active Substance: ADALIMUMAB
     Indication: Psoriasis
     Dosage: UNK
     Route: 065
  11. STELARA [Suspect]
     Active Substance: USTEKINUMAB
     Indication: Psoriasis
     Dosage: UNK, (OVER THE SIX MONTHS)
     Route: 065
  12. TREMFYA [Suspect]
     Active Substance: GUSELKUMAB
     Indication: Psoriasis
     Dosage: UNK
     Route: 065
  13. CYCLOSPORINE [Suspect]
     Active Substance: CYCLOSPORINE
     Indication: Psoriasis
     Dosage: UNK (FOR NEARLY TEN YEARS)
     Route: 065
  14. CYCLOSPORINE [Suspect]
     Active Substance: CYCLOSPORINE
     Dosage: UNK (REDUCE THE DOSE OF CICLOSPORIN)
     Route: 065
     Dates: end: 2017
  15. AQUAPHOR [Concomitant]
     Active Substance: PETROLATUM
     Indication: Psoriasis
     Dosage: UNK
     Route: 065
  16. COAL TAR [Concomitant]
     Active Substance: COAL TAR
     Indication: Psoriasis
     Dosage: UNK
     Route: 065
  17. PSORALEN [Concomitant]
     Active Substance: PSORALEN
     Indication: Psoriasis
     Dosage: UNK
     Route: 065

REACTIONS (3)
  - Drug ineffective [Unknown]
  - Viral infection [Unknown]
  - Bacterial infection [Unknown]
